FAERS Safety Report 5681099-1 (Version None)
Quarter: 2008Q1

REPORT INFORMATION
  Report Type: 
  Country: None (occurrence: None)
  Receive Date: 20080325
  Receipt Date: 20080314
  Transmission Date: 20080703
  Serious: Yes (Hospitalization, Other)
  Sender: FDA-Public Use
  Company Number: GXKR2008CA02677

PATIENT
  Age: 41 Year
  Sex: Female

DRUGS (5)
  1. HALOPERIDOL [Suspect]
     Indication: AGITATION
  2. OLANZAPINE [Suspect]
     Dosage: 5 MG, PRN, SUBLINGUAL
     Route: 060
  3. BENZTROPINE MESYLATE [Suspect]
     Indication: AGITATION
  4. LORAZEPAM [Concomitant]
  5. PROPOFOL [Concomitant]

REACTIONS (22)
  - BRUXISM [None]
  - CATATONIA [None]
  - CHOREA [None]
  - CLONUS [None]
  - COMMUNICATION DISORDER [None]
  - CONDITION AGGRAVATED [None]
  - CONFUSIONAL STATE [None]
  - DEPRESSED LEVEL OF CONSCIOUSNESS [None]
  - DYSTONIA [None]
  - GRIMACING [None]
  - HYPERREFLEXIA [None]
  - MENTAL STATUS CHANGES [None]
  - MUSCLE RIGIDITY [None]
  - MUTISM [None]
  - NEGATIVISM [None]
  - NO THERAPEUTIC RESPONSE [None]
  - PNEUMONIA ASPIRATION [None]
  - PSYCHOMOTOR HYPERACTIVITY [None]
  - PULMONARY EMBOLISM [None]
  - THERAPEUTIC RESPONSE DECREASED [None]
  - TONGUE BITING [None]
  - WHITE BLOOD CELL COUNT DECREASED [None]
